FAERS Safety Report 6564629-7 (Version None)
Quarter: 2010Q1

REPORT INFORMATION
  Report Type: 
  Country: None (occurrence: None)
  Receive Date: 20100201
  Receipt Date: 20100127
  Transmission Date: 20100710
  Serious: Yes (Death)
  Sender: FDA-Public Use
  Company Number: PHHY2010JP04616

PATIENT
  Sex: Male

DRUGS (2)
  1. RASILEZ [Suspect]
     Route: 048
  2. BLOPRESS [Concomitant]
     Route: 048

REACTIONS (1)
  - DEATH [None]
